FAERS Safety Report 17594793 (Version 4)
Quarter: 2020Q3

REPORT INFORMATION
  Report Type: Report from Study
  Country: None (occurrence: CO)
  Receive Date: 20200328
  Receipt Date: 20200930
  Transmission Date: 20201102
  Serious: Yes (Death, Hospitalization, Other)
  Sender: FDA-Public Use
  Company Number: CO-ABBVIE-20K-036-3340933-00

PATIENT
  Age: 73 Year
  Sex: Female
  Weight: 50 kg

DRUGS (4)
  1. LOSARTAN. [Concomitant]
     Active Substance: LOSARTAN
     Indication: PRODUCT USED FOR UNKNOWN INDICATION
  2. AMLODIPINE [Concomitant]
     Active Substance: AMLODIPINE BESYLATE
     Indication: PRODUCT USED FOR UNKNOWN INDICATION
  3. ZEMPLAR [Suspect]
     Active Substance: PARICALCITOL
     Indication: CHRONIC KIDNEY DISEASE
     Route: 058
     Dates: start: 20200303, end: 20200319
  4. ZEMPLAR [Suspect]
     Active Substance: PARICALCITOL
     Indication: HYPERPARATHYROIDISM SECONDARY
     Route: 058
     Dates: start: 2020, end: 20200721

REACTIONS (6)
  - Periprocedural myocardial infarction [Recovered/Resolved]
  - Choking sensation [Recovering/Resolving]
  - Cardiac disorder [Fatal]
  - Myocardial infarction [Recovering/Resolving]
  - Pulmonary thrombosis [Recovering/Resolving]
  - Cardiomegaly [Recovering/Resolving]

NARRATIVE: CASE EVENT DATE: 2020
